FAERS Safety Report 10225765 (Version 2)
Quarter: 2014Q2

REPORT INFORMATION
  Report Type: Spontaneous
  Country: US (occurrence: US)
  Receive Date: 20140609
  Receipt Date: 20140609
  Transmission Date: 20141212
  Serious: Yes (Other)
  Sender: FDA-Public Use
  Company Number: US-ASTELLAS-2013US011262

PATIENT
  Age: 60 Year
  Sex: Male
  Weight: 47 kg

DRUGS (8)
  1. PROGRAF [Suspect]
     Indication: RENAL TRANSPLANT
     Route: 048
     Dates: start: 20080103, end: 20131023
  2. PROGRAF [Suspect]
     Route: 048
     Dates: start: 20131024
  3. SPIRONOLACTONE [Suspect]
     Indication: PRODUCT USED FOR UNKNOWN INDICATION
     Route: 048
     Dates: start: 20131025, end: 20131108
  4. METHYLPREDNISOLONE [Concomitant]
     Indication: PRODUCT USED FOR UNKNOWN INDICATION
     Route: 048
     Dates: start: 20130905
  5. CELLCEPT                           /01275102/ [Concomitant]
     Indication: PRODUCT USED FOR UNKNOWN INDICATION
     Dosage: 250 MG, Q8 HOURS
     Route: 048
     Dates: start: 20131025
  6. LISINOPRIL [Concomitant]
     Indication: PRODUCT USED FOR UNKNOWN INDICATION
     Route: 065
     Dates: end: 20131025
  7. ASPIRIN [Concomitant]
     Indication: PRODUCT USED FOR UNKNOWN INDICATION
     Route: 048
  8. NOVOLOG MIX [Concomitant]
     Indication: PRODUCT USED FOR UNKNOWN INDICATION
     Route: 058

REACTIONS (17)
  - Decreased appetite [Unknown]
  - Asthenia [Unknown]
  - Fatigue [Unknown]
  - Muscle spasms [Unknown]
  - Renal failure acute [Unknown]
  - Type 2 diabetes mellitus [Unknown]
  - Essential hypertension [Unknown]
  - Cerebrovascular accident [Unknown]
  - Anaemia [Unknown]
  - Proteinuria [Unknown]
  - Arthritis [Unknown]
  - Intervertebral disc degeneration [Unknown]
  - Hyperlipidaemia [Unknown]
  - Depression [Unknown]
  - Oedema [Unknown]
  - Hyperkalaemia [Unknown]
  - Back pain [Unknown]
